FAERS Safety Report 13395704 (Version 1)
Quarter: 2017Q2

REPORT INFORMATION
  Report Type: Spontaneous
  Country: US (occurrence: US)
  Receive Date: 20170402
  Receipt Date: 20170402
  Transmission Date: 20170830
  Serious: Yes (Hospitalization, Disabling)
  Sender: FDA-Public Use
  Company Number: None

PATIENT
  Age: 35 Year
  Sex: Male
  Weight: 54 kg

DRUGS (5)
  1. VITAMIN B COMPLEX [Concomitant]
     Active Substance: CYANOCOBALAMIN\DEXPANTHENOL\NIACINAMIDE\PYRIDOXINE HYDROCHLORIDE\RIBOFLAVIN 5^-PHOSPHATE SODIUM\THIAMINE HYDROCHLORIDE\VITAMIN B COMPLEX
  2. N ACETYL L. CYSTEINE [Concomitant]
  3. CIPROFLOXACIN HCI 250MG TAB [Suspect]
     Active Substance: CIPROFLOXACIN HYDROCHLORIDE
     Indication: PROSTATITIS
     Dosage: ?          QUANTITY:14 TABLET(S);?
     Route: 048
     Dates: start: 20161220, end: 20161227
  4. FLOMAX [Concomitant]
     Active Substance: TAMSULOSIN HYDROCHLORIDE
  5. MAGNESIUM [Concomitant]
     Active Substance: MAGNESIUM

REACTIONS (22)
  - Asthenia [None]
  - Bone pain [None]
  - Muscle twitching [None]
  - Arthralgia [None]
  - Arthritis [None]
  - Hypertension [None]
  - Depersonalisation/derealisation disorder [None]
  - Myalgia [None]
  - Vitreous floaters [None]
  - Ear discomfort [None]
  - Head discomfort [None]
  - Eye pain [None]
  - Joint crepitation [None]
  - Tremor [None]
  - Tinnitus [None]
  - Quality of life decreased [None]
  - Disorientation [None]
  - Loss of employment [None]
  - Dizziness [None]
  - Anxiety [None]
  - Panic attack [None]
  - Fatigue [None]

NARRATIVE: CASE EVENT DATE: 20161220
